FAERS Safety Report 16156265 (Version 1)
Quarter: 2019Q2

REPORT INFORMATION
  Report Type: Spontaneous
  Country: JP (occurrence: JP)
  Receive Date: 20190404
  Receipt Date: 20190404
  Transmission Date: 20190711
  Serious: Yes (Hospitalization)
  Sender: FDA-Public Use
  Company Number: JP-ASTRAZENECA-2019SE49505

PATIENT
  Age: 30185 Day
  Sex: Female

DRUGS (5)
  1. APIXABAN [Concomitant]
     Active Substance: APIXABAN
     Route: 065
     Dates: start: 20170508
  2. NEXIUM [Suspect]
     Active Substance: ESOMEPRAZOLE MAGNESIUM
     Indication: GASTROOESOPHAGEAL REFLUX DISEASE
     Route: 048
     Dates: start: 20150410
  3. LUPRAC [Suspect]
     Active Substance: TORSEMIDE
     Dosage: 4 MG
     Route: 048
     Dates: start: 20120711
  4. AIMIX [Suspect]
     Active Substance: AMLODIPINE BESYLATE\IRBESARTAN
     Dosage: DOSE UNKNOWN
     Route: 048
     Dates: start: 20131204
  5. WARFARIN POTASSIUM [Concomitant]
     Active Substance: WARFARIN POTASSIUM
     Dosage: DOSE UNKNOWN
     Route: 065

REACTIONS (5)
  - Pneumonia [Recovered/Resolved]
  - Fall [Unknown]
  - Upper respiratory tract inflammation [Recovered/Resolved]
  - Breast discharge [Recovering/Resolving]
  - White matter lesion [Recovering/Resolving]

NARRATIVE: CASE EVENT DATE: 20171111
